FAERS Safety Report 19928930 (Version 1)
Quarter: 2021Q4

REPORT INFORMATION
  Report Type: Spontaneous
  Country: NL (occurrence: NL)
  Receive Date: 20211007
  Receipt Date: 20211007
  Transmission Date: 20220303
  Serious: Yes (Other)
  Sender: FDA-Public Use
  Company Number: NL-MYLANLABS-2021M1069648

PATIENT
  Sex: Male

DRUGS (2)
  1. METHYLPHENIDATE [Suspect]
     Active Substance: METHYLPHENIDATE
     Indication: Narcolepsy
     Dosage: UNK
     Route: 065
  2. MODAFINIL [Suspect]
     Active Substance: MODAFINIL
     Indication: Narcolepsy
     Dosage: UNK
     Route: 065

REACTIONS (2)
  - Aggression [Recovering/Resolving]
  - Off label use [Recovering/Resolving]
